FAERS Safety Report 6613985-X (Version None)
Quarter: 2010Q1

REPORT INFORMATION
  Report Type: 
  Country: None (occurrence: None)
  Receive Date: 20100225
  Receipt Date: 20090513
  Transmission Date: 20100710
  Serious: Yes (Hospitalization, Disabling)
  Sender: FDA-Public Use
  Company Number: 549222

PATIENT
  Age: 34 Year
  Sex: Male
  Weight: 72.6 kg

DRUGS (2)
  1. ACCUTANE [Suspect]
     Indication: ACNE
     Dates: start: 19890101, end: 19971228
  2. ALBUTEROL [Concomitant]

REACTIONS (10)
  - ARTHRALGIA [None]
  - COLITIS [None]
  - COLITIS ULCERATIVE [None]
  - DEPRESSION [None]
  - DRY SKIN [None]
  - EMOTIONAL DISTRESS [None]
  - LIP DRY [None]
  - NASAL DRYNESS [None]
  - OCULAR HYPERAEMIA [None]
  - SPINAL COMPRESSION FRACTURE [None]
